FAERS Safety Report 12126868 (Version 1)
Quarter: 2016Q1

REPORT INFORMATION
  Report Type: Spontaneous
  Country: IT (occurrence: IT)
  Receive Date: 20160229
  Receipt Date: 20160229
  Transmission Date: 20160526
  Serious: Yes (Hospitalization)
  Sender: FDA-Public Use
  Company Number: IT-SA-2016SA036122

PATIENT
  Age: 71 Year
  Sex: Male

DRUGS (7)
  1. BISOPROLOL [Concomitant]
     Active Substance: BISOPROLOL
  2. PANTOPRAZOLE [Concomitant]
     Active Substance: PANTOPRAZOLE SODIUM
  3. CLOPIDOGREL BISULFATE. [Suspect]
     Active Substance: CLOPIDOGREL BISULFATE
     Indication: ANTIPLATELET THERAPY
     Route: 065
     Dates: start: 20140524, end: 201407
  4. ISOSORBIDE DINITRATE. [Concomitant]
     Active Substance: ISOSORBIDE DINITRATE
  5. ASPIRIN. [Concomitant]
     Active Substance: ASPIRIN
     Dates: start: 201407
  6. ASPIRIN. [Concomitant]
     Active Substance: ASPIRIN
     Dates: end: 201405
  7. AMIODARONE [Concomitant]
     Active Substance: AMIODARONE

REACTIONS (14)
  - Abdominal tenderness [Recovering/Resolving]
  - Hepatotoxicity [Recovering/Resolving]
  - Vomiting [Recovering/Resolving]
  - Hepatomegaly [Recovered/Resolved]
  - Splenomegaly [Recovered/Resolved]
  - Blood bilirubin increased [Recovered/Resolved]
  - Jaundice [Recovered/Resolved]
  - Pruritus [Recovering/Resolving]
  - General physical condition abnormal [Recovering/Resolving]
  - Nausea [Recovering/Resolving]
  - Ascites [Recovered/Resolved]
  - Somnolence [Recovering/Resolving]
  - Gamma-glutamyltransferase increased [Recovering/Resolving]
  - Blood alkaline phosphatase increased [Recovering/Resolving]

NARRATIVE: CASE EVENT DATE: 2014
